FAERS Safety Report 15623650 (Version 1)
Quarter: 2018Q4

REPORT INFORMATION
  Report Type: Spontaneous
  Country: US (occurrence: US)
  Receive Date: 20181115
  Receipt Date: 20181115
  Transmission Date: 20190205
  Serious: Yes (Hospitalization)
  Sender: FDA-Public Use
  Company Number: US-VIFOR (INTERNATIONAL) INC.-VIT-2018-11213

PATIENT
  Age: 62 Year
  Sex: Female

DRUGS (21)
  1. HYDROCORTISONE MAX ST [Concomitant]
  2. SENSIPAR [Concomitant]
     Active Substance: CINACALCET HYDROCHLORIDE
  3. VITAMIN D3 COMPLETE [Concomitant]
  4. AMLODIPINE BESYLATE. [Concomitant]
     Active Substance: AMLODIPINE BESYLATE
  5. ENEMA DISPOSABLE [Concomitant]
  6. LIDOCAINE-PRILOCAINE [Concomitant]
     Active Substance: LIDOCAINE\PRILOCAINE
  7. HYDRALAZINE HCL [Concomitant]
     Active Substance: HYDRALAZINE HYDROCHLORIDE
  8. ASPIRIN 81 [Concomitant]
     Active Substance: ASPIRIN
  9. ATORVASTATIN CALCIUM. [Concomitant]
     Active Substance: ATORVASTATIN CALCIUM
  10. NITROGLYCERIN. [Concomitant]
     Active Substance: NITROGLYCERIN
  11. SENNA LEAVES [Concomitant]
     Active Substance: SENNOSIDES A AND B
  12. HUMALOG KWIKPEN [Concomitant]
     Active Substance: INSULIN LISPRO
  13. NYSTOP [Concomitant]
     Active Substance: NYSTATIN
  14. RENAGEL [Concomitant]
     Active Substance: SEVELAMER HYDROCHLORIDE
  15. SEVELAMER CARBONATE. [Concomitant]
     Active Substance: SEVELAMER CARBONATE
  16. MIRALAX [Concomitant]
     Active Substance: POLYETHYLENE GLYCOL 3350
  17. VELTASSA [Suspect]
     Active Substance: PATIROMER
     Indication: END STAGE RENAL DISEASE
     Route: 048
     Dates: start: 20181026
  18. METOPROLOL SUCCINATE ER [Concomitant]
     Active Substance: METOPROLOL SUCCINATE
  19. RANITIDINE HCL [Concomitant]
     Active Substance: RANITIDINE HYDROCHLORIDE
  20. COLACE [Concomitant]
     Active Substance: DOCUSATE SODIUM
  21. BISAC-EVAC [Concomitant]
     Active Substance: BISACODYL

REACTIONS (2)
  - Off label use [Unknown]
  - Hospitalisation [Unknown]

NARRATIVE: CASE EVENT DATE: 20181026
